FAERS Safety Report 4745241-9 (Version None)
Quarter: 2005Q3

REPORT INFORMATION
  Report Type: 
  Country: None (occurrence: None)
  Receive Date: 20050812
  Receipt Date: 20050801
  Transmission Date: 20060218
  Serious: Yes (Hospitalization, Other)
  Sender: FDA-Public Use
  Company Number: 2005110329

PATIENT
  Age: 75 Year
  Sex: Male
  Weight: 90 kg

DRUGS (10)
  1. LIPITOR [Suspect]
     Indication: ILL-DEFINED DISORDER
     Dosage: 10 MG (10 MG, 1 IN 1 D), ORAL
     Route: 048
     Dates: end: 20050601
  2. TRIMETHOPRIM [Concomitant]
  3. DOXAZOSIN (DOXAZOSIN) [Concomitant]
  4. VALSARTAN [Concomitant]
  5. MOXONIDINE (MOXONIDINE) [Concomitant]
  6. BENDROFLUMETHIAZIDE (BENDROFLUMETHIAZIDE) [Concomitant]
  7. ACETYLSALICYLIC ACID SRT [Concomitant]
  8. CALMURID    (BETAINE, LACTIC ACID, UREA) [Concomitant]
  9. ANUSOL [Concomitant]
  10. ACETAMINOPHEN [Concomitant]

REACTIONS (5)
  - CAROTID ARTERY ATHEROMA [None]
  - CEREBELLAR INFARCTION [None]
  - MOBILITY DECREASED [None]
  - MUSCULOSKELETAL STIFFNESS [None]
  - PAIN IN EXTREMITY [None]
